FAERS Safety Report 4395424-5 (Version None)
Quarter: 2004Q3

REPORT INFORMATION
  Report Type: 
  Country: None (occurrence: None)
  Receive Date: 20040709
  Receipt Date: 20040629
  Transmission Date: 20050211
  Serious: Yes (Hospitalization, Other)
  Sender: FDA-Public Use
  Company Number: 2003119626

PATIENT
  Age: 57 Year
  Sex: Female
  Weight: 57.1532 kg

DRUGS (38)
  1. LIPITOR [Suspect]
     Indication: HYPERLIPIDAEMIA
     Dosage: 20 MG (DAILY), ORAL/ ABOUT 3 YEARS AGO
     Route: 048
  2. CYCLOSPORINE [Suspect]
     Indication: ILL-DEFINED DISORDER
     Dosage: 125 MG (DAILY),
  3. LANSOPRAZOLE [Concomitant]
  4. HYOSCYAMINE SULFATE AND PHENOBARBITAL [Concomitant]
  5. HYOSCYAMINE SULFATE AND PHENOBARBITAL [Concomitant]
  6. NIFEDIPINE [Concomitant]
  7. DANAZOL [Concomitant]
  8. FENTANYL [Concomitant]
  9. MORPHINE SULFATE [Concomitant]
  10. AXOTAL (OLD FORM) (CAFFEINE, BUTALBITAL, PARACETAMOL) [Concomitant]
  11. LIDOCAINE [Concomitant]
  12. OLOPATADINE HYDROCHLORIDE (OLOPATADINE HYDROCHLORIDE) [Concomitant]
  13. CICLOPIROX (CICLOPIROX) [Concomitant]
  14. TIZANIDINE HCL [Concomitant]
  15. CLOPIDOGREL BISULFATE [Concomitant]
  16. ESTRADIOL [Concomitant]
  17. FEMOVIRIN (TESTOSTERONE CIPIONATE, ESTRADIOL CIPIONATE) [Concomitant]
  18. PROMETHAZINE [Concomitant]
  19. HYDROMORPHONE HCL [Concomitant]
  20. FEXOFENADINE HYDROCHLORIDE [Concomitant]
  21. WARFARIN SODIUM [Concomitant]
  22. CALCIUM (CALCIUM) [Concomitant]
  23. MULTIVITAMIN [Concomitant]
  24. MACROGOL (MACROGOL) [Concomitant]
  25. DIPHENHYDRAMINE HCL [Concomitant]
  26. CARISOPRODOL [Concomitant]
  27. METOPROLOL (METOPROLOL) [Concomitant]
  28. LOSARTAN POTASSIUM [Concomitant]
  29. VERAPAMIL HCL [Concomitant]
  30. RANITIDINE HYDROCHLORIDE [Concomitant]
  31. DOCUSATE SODIUM (DOCUSATE SODIUM) [Concomitant]
  32. RABEPRAZOLE SODIUM (RABEPRAZOLE SODIUM) [Concomitant]
  33. HYOSCYAMINE SULFATE AND PHENOBARBITAL [Concomitant]
  34. CLONIDINE [Concomitant]
  35. POTASSIUM CHLORIDE [Concomitant]
  36. ZOLPIDEM TARTRATE [Concomitant]
  37. VICODIN [Concomitant]
  38. ERGOCALCIFEROL (ERGOCALCIFEROL) [Concomitant]

REACTIONS (26)
  - ALANINE AMINOTRANSFERASE INCREASED [None]
  - ANGIONEUROTIC OEDEMA [None]
  - AORTIC ATHEROSCLEROSIS [None]
  - BLOOD ALKALINE PHOSPHATASE INCREASED [None]
  - BLOOD CHOLESTEROL INCREASED [None]
  - BURNS FIRST DEGREE [None]
  - BURNS THIRD DEGREE [None]
  - CEREBROVASCULAR ACCIDENT [None]
  - CHOLECYSTITIS [None]
  - CHOLELITHIASIS [None]
  - DERMATITIS [None]
  - DIFFICULTY IN WALKING [None]
  - FLUSHING [None]
  - HYPERLIPIDAEMIA [None]
  - HYPERTENSION [None]
  - LOW DENSITY LIPOPROTEIN INCREASED [None]
  - MEMORY IMPAIRMENT [None]
  - MITRAL VALVE INCOMPETENCE [None]
  - PAIN IN EXTREMITY [None]
  - PANCREATITIS [None]
  - PHOTOSENSITIVITY ALLERGIC REACTION [None]
  - RASH [None]
  - SPEECH DISORDER [None]
  - TRANSIENT ISCHAEMIC ATTACK [None]
  - VENTRICULAR HYPERTROPHY [None]
  - WEIGHT DECREASED [None]
